FAERS Safety Report 8503045-5 (Version None)
Quarter: 2012Q3

REPORT INFORMATION
  Report Type: 
  Country: None (occurrence: None)
  Receive Date: 20120711
  Receipt Date: 20120701
  Transmission Date: 20120928
  Serious: Yes (Hospitalization, Other)
  Sender: FDA-Public Use
  Company Number: CA-ELI_LILLY_AND_COMPANY-CA201207001102

PATIENT
  Age: 58 Year
  Sex: Female

DRUGS (23)
  1. FUROSEMIDE [Concomitant]
  2. BISOPROLOL FUMARATE [Concomitant]
     Dosage: UNK, PRN
  3. BETAHISTINE [Concomitant]
  4. CITALOPRAM HYDROBROMIDE [Concomitant]
  5. FLOVENT [Concomitant]
  6. VITAMIN D [Concomitant]
  7. FORTEO [Suspect]
     Indication: OSTEOPOROSIS
     Dosage: 20 UG, UNK
     Dates: start: 20110629
  8. HYDROXYZINE [Concomitant]
  9. ATROVENT [Concomitant]
  10. STOOL SOFTENER [Concomitant]
  11. ADVAIR DISKUS 100/50 [Concomitant]
  12. SPIRIVA [Concomitant]
  13. CALCIUM CITRATE [Concomitant]
  14. MAGNESIUM SULFATE [Concomitant]
  15. MULTI-VITAMIN [Concomitant]
  16. ATACAND [Concomitant]
  17. ALPRAZOLAM [Concomitant]
  18. OXYCET [Concomitant]
     Dosage: UNK, TID
  19. VITAMIN B COMPLEX CAP [Concomitant]
     Dosage: 100 MG, UNKNOWN
  20. PREDNISONE [Concomitant]
     Dosage: 35 MG, UNKNOWN
  21. ALBUTEROL SULATE [Concomitant]
  22. LOVAZA [Concomitant]
  23. ADALAT CC [Concomitant]

REACTIONS (3)
  - CONFUSIONAL STATE [None]
  - EMPHYSEMA [None]
  - DYSPNOEA [None]
